FAERS Safety Report 22199261 (Version 1)
Quarter: 2023Q2

REPORT INFORMATION
  Report Type: Spontaneous
  Country: GB (occurrence: GB)
  Receive Date: 20230411
  Receipt Date: 20230411
  Transmission Date: 20230721
  Serious: No
  Sender: FDA-Public Use
  Company Number: None

PATIENT

DRUGS (1)
  1. QUETIAPINE FUMARATE [Suspect]
     Active Substance: QUETIAPINE FUMARATE
     Indication: Product used for unknown indication
     Dosage: 175 MILLIGRAM TABLET (STRENGTH: 100 MG AND 25 MG (100-1 AND 23-3)), QUETIAPINE ACCORD
     Route: 065

REACTIONS (4)
  - Headache [Unknown]
  - Constipation [Unknown]
  - Sinus congestion [Unknown]
  - Thyroid function test abnormal [Unknown]
